FAERS Safety Report 20526393 (Version 1)
Quarter: 2022Q1

REPORT INFORMATION
  Report Type: Spontaneous
  Country: US (occurrence: US)
  Receive Date: 20220228
  Receipt Date: 20220228
  Transmission Date: 20220423
  Serious: No
  Sender: FDA-Public Use
  Company Number: US-SA-SAC20220221001280

PATIENT
  Sex: Male

DRUGS (2)
  1. DUPIXENT [Suspect]
     Active Substance: DUPILUMAB
     Indication: Dermatitis atopic
     Dosage: 1 D, QOW
     Route: 058
     Dates: start: 20210805
  2. COVID-19 VACCINE [Concomitant]
     Indication: COVID-19 immunisation

REACTIONS (2)
  - Impaired quality of life [Unknown]
  - Intentional dose omission [Unknown]
